FAERS Safety Report 9812135 (Version 1)
Quarter: 2014Q1

REPORT INFORMATION
  Report Type: Report from Study
  Country: GB (occurrence: GB)
  Receive Date: 20140111
  Receipt Date: 20140111
  Transmission Date: 20141002
  Serious: Yes (Hospitalization)
  Sender: FDA-Public Use
  Company Number: GB-ROCHE-1331454

PATIENT
  Sex: Female
  Weight: 87 kg

DRUGS (2)
  1. RITUXIMAB [Suspect]
     Indication: RHEUMATOID ARTHRITIS
     Dosage: LAST DOSE PRIOR TO SAE: 03/JUL/2012
     Route: 065
     Dates: start: 20120621
  2. METHOTREXATE [Concomitant]
     Route: 065
     Dates: start: 20060411

REACTIONS (1)
  - Joint dislocation [Unknown]
